FAERS Safety Report 22279008 (Version 1)
Quarter: 2023Q2

REPORT INFORMATION
  Report Type: Spontaneous
  Country: DK (occurrence: DK)
  Receive Date: 20230503
  Receipt Date: 20230503
  Transmission Date: 20230721
  Serious: Yes (Other)
  Sender: FDA-Public Use
  Company Number: None

PATIENT
  Age: 58 Year
  Sex: Female
  Weight: 68 kg

DRUGS (6)
  1. REPATHA [Suspect]
     Active Substance: EVOLOCUMAB
     Indication: Type IIa hyperlipidaemia
     Dosage: 140 MILLIGRAM, Q2WK
     Route: 058
     Dates: start: 20210224, end: 20220311
  2. ACETAMINOPHEN [Concomitant]
     Active Substance: ACETAMINOPHEN
     Indication: Pain
     Dates: start: 20160722
  3. HUSK PSYLLIUM FROESKALLER [Concomitant]
     Indication: Hypercholesterolaemia
     Dates: start: 20200908
  4. OMEPRAZOLE [Concomitant]
     Active Substance: OMEPRAZOLE
     Indication: Dyspepsia
     Dates: start: 20210809
  5. CARBOMER [Concomitant]
     Active Substance: CARBOMER
     Indication: Dry eye
     Dates: start: 20201124
  6. VAGIFEM [Concomitant]
     Active Substance: ESTRADIOL
     Indication: Hormone therapy
     Dates: start: 20200708

REACTIONS (2)
  - Macular dystrophy congenital [Not Recovered/Not Resolved]
  - Eye symptom [Not Recovered/Not Resolved]

NARRATIVE: CASE EVENT DATE: 20220311
